FAERS Safety Report 24097160 (Version 1)
Quarter: 2024Q3

REPORT INFORMATION
  Report Type: Spontaneous
  Country: FI (occurrence: FI)
  Receive Date: 20240716
  Receipt Date: 20240716
  Transmission Date: 20241016
  Serious: Yes (Hospitalization, Other)
  Sender: PFIZER
  Company Number: FI-BAXTER-2024BAX011626

PATIENT
  Age: 70 Year
  Sex: Female
  Weight: 96 kg

DRUGS (59)
  1. RITUXIMAB [Suspect]
     Active Substance: RITUXIMAB
     Indication: Diffuse large B-cell lymphoma stage II
     Dosage: 375 MG/M2 (800 MG TOTAL DOSE), CYCLE 1 - CYCLE 3, AS A PART OF R-ICE REGIMEN
     Route: 042
     Dates: start: 20231212, end: 20240123
  2. RITUXIMAB [Suspect]
     Active Substance: RITUXIMAB
     Dosage: 375 MG/M2, A REDUCED TOTAL DOSE OF 731 MG (PREVIOUSLY 761 MG), CYCLE 3, AS A PART OF R-ICE REGIMEN
     Dates: start: 20240123, end: 20240123
  3. CARBOPLATIN [Suspect]
     Active Substance: CARBOPLATIN
     Indication: Diffuse large B-cell lymphoma stage II
     Dosage: 5 AUC, CYCLE 1, ONWARDS, ONGOING
     Route: 042
     Dates: start: 20231213, end: 20240103
  4. CARBOPLATIN [Suspect]
     Active Substance: CARBOPLATIN
     Dosage: 3.1 AUC, CYCLE 3 DAY 1, AS A PART OF R-ICE REGIMEN
     Dates: start: 20240124, end: 20240124
  5. CYCLOPHOSPHAMIDE [Suspect]
     Active Substance: CYCLOPHOSPHAMIDE
     Dosage: UNK
     Dates: start: 20230928, end: 20231109
  6. DOXORUBICIN [Suspect]
     Active Substance: DOXORUBICIN
     Dosage: UNK
     Dates: start: 20230928, end: 20231109
  7. EPCORITAMAB [Suspect]
     Active Substance: EPCORITAMAB
     Indication: Diffuse large B-cell lymphoma stage II
     Dosage: 0.8 MG, C1D8 INTERMEDIATE DOSE AS A PART OF R-ICE REGIMEN
     Route: 058
     Dates: start: 20231221, end: 20231221
  8. EPCORITAMAB [Suspect]
     Active Substance: EPCORITAMAB
     Dosage: 48 MG, C2D1, LATEST DOSE ADMINISTERED
     Dates: start: 20240104
  9. EPCORITAMAB [Suspect]
     Active Substance: EPCORITAMAB
     Dosage: 48 MG, C1D15 FULL DOSE, ONGOING, AS A PART OF R-ICE REGIMEN
     Route: 058
     Dates: start: 20231228
  10. EPCORITAMAB [Suspect]
     Active Substance: EPCORITAMAB
     Dosage: 0.16 MG, C1D1 PRIMING DOSE AS A PART OF R-ICE REGIMEN
     Route: 058
     Dates: start: 20231214, end: 20231214
  11. EPCORITAMAB [Suspect]
     Active Substance: EPCORITAMAB
     Dosage: 48 MG
     Dates: start: 20240111
  12. EPCORITAMAB [Suspect]
     Active Substance: EPCORITAMAB
     Dosage: 48 MG C2D15
     Dates: start: 20240118
  13. EPCORITAMAB [Suspect]
     Active Substance: EPCORITAMAB
     Dosage: 48 MG C3D1, LATEST DOSE ADMINISTERED
     Dates: start: 20240125
  14. ETOPOSIDE [Suspect]
     Active Substance: ETOPOSIDE
     Indication: Diffuse large B-cell lymphoma stage II
     Dosage: CYCLE 1  AS A PART OF R-ICE REGIMEN
     Route: 042
     Dates: start: 20231212, end: 20231214
  15. ETOPOSIDE [Suspect]
     Active Substance: ETOPOSIDE
     Dosage: 100 MG/M2 CYCLE 2, AS A PART OF R-ICE REGIMEN
     Route: 042
     Dates: start: 20240102, end: 20240104
  16. ETOPOSIDE [Suspect]
     Active Substance: ETOPOSIDE
     Dosage: 82 MG/M2 AT A REDUCED DOSE OF 82 MG/M2, CYCLE 3, AS A PART OF R-ICE REGIMEN
     Dates: start: 20240123, end: 20240125
  17. IFOSFAMIDE [Suspect]
     Active Substance: IFOSFAMIDE
     Indication: Diffuse large B-cell lymphoma stage II
     Dosage: UNK, CYCLE 11 INFUSION, AS A PART OF R-ICE REGIMEN, INFUSION
     Route: 042
     Dates: start: 20231213, end: 20231214
  18. IFOSFAMIDE [Suspect]
     Active Substance: IFOSFAMIDE
     Dosage: 5000 MG/M2, CYCLE 2 DAY 1, INFUSION, AS A PART OF R-ICE REGIMEN, INFUSION
     Route: 042
     Dates: start: 20240103, end: 20240104
  19. IFOSFAMIDE [Suspect]
     Active Substance: IFOSFAMIDE
     Dosage: 385 MG/M2 CYCLE 3, INFUSION, AS A PART OF R-ICE REGIMEN, INFUSION
     Dates: start: 20240124, end: 20240125
  20. POLYETHYLENE GLYCOL 4000 [Concomitant]
     Active Substance: POLYETHYLENE GLYCOL 4000
     Dosage: UNK
     Dates: start: 20230929
  21. DIFLUCAN [Concomitant]
     Active Substance: FLUCONAZOLE
     Dosage: UNK
     Dates: start: 20231222, end: 20231229
  22. ELECTROLYTES NOS [Concomitant]
     Active Substance: ELECTROLYTES NOS
     Dosage: UNK
     Dates: start: 20231228, end: 20231229
  23. ACETAMINOPHEN [Concomitant]
     Active Substance: ACETAMINOPHEN
     Dosage: 1 G
     Route: 048
     Dates: start: 20240104, end: 20240104
  24. ACETAMINOPHEN [Concomitant]
     Active Substance: ACETAMINOPHEN
     Dosage: 1 G
     Dates: start: 20240111, end: 20240111
  25. ACETAMINOPHEN [Concomitant]
     Active Substance: ACETAMINOPHEN
     Dosage: 1 G
     Dates: start: 20240118, end: 20240118
  26. ACETAMINOPHEN [Concomitant]
     Active Substance: ACETAMINOPHEN
     Dosage: 1 G
     Dates: start: 20240125
  27. OXAZEPAM [Concomitant]
     Active Substance: OXAZEPAM
     Dosage: UNK
     Dates: start: 20231204
  28. CEFUROXIME [Concomitant]
     Active Substance: CEFUROXIME
     Dosage: UNK
     Dates: start: 20231228, end: 20231231
  29. PRIMPERAN [Concomitant]
     Active Substance: METOCLOPRAMIDE HYDROCHLORIDE
     Dosage: UNK
     Dates: start: 20230925
  30. SODIUM CHLORIDE [Concomitant]
     Active Substance: SODIUM CHLORIDE
     Dosage: UNK, SODIUM CHLORIDE
     Dates: start: 20240102, end: 20240104
  31. ARANESP [Concomitant]
     Active Substance: DARBEPOETIN ALFA
     Dosage: UNK
     Dates: start: 20231222, end: 20240222
  32. LEVOTHYROXINE [Concomitant]
     Active Substance: LEVOTHYROXINE\LEVOTHYROXINE SODIUM
     Dosage: UNK
     Dates: start: 20201109
  33. BECLOMET [BECLOMETASONE DIPROPIONATE] [Concomitant]
     Dosage: UNK, ONGOING
     Dates: start: 20201209
  34. PANADOL [Concomitant]
     Active Substance: ACETAMINOPHEN
     Dosage: UNK
     Dates: start: 20240126
  35. HYDROCORTISONE [Concomitant]
     Active Substance: HYDROCORTISONE\HYDROCORTISONE ACETATE
     Dosage: UNK
     Dates: start: 20231218
  36. HYDROCORTISONE [Concomitant]
     Active Substance: HYDROCORTISONE\HYDROCORTISONE ACETATE
     Dosage: UNK
     Dates: start: 20240104, end: 20240307
  37. IBUPROFEN [Concomitant]
     Active Substance: IBUPROFEN
     Dosage: UNK
     Dates: start: 20230925, end: 20231230
  38. PANTOPRAZOLE SODIUM [Concomitant]
     Active Substance: PANTOPRAZOLE SODIUM
     Dosage: UNK, ONGOING
     Dates: start: 20230925
  39. DEXAMETHASONE [Concomitant]
     Active Substance: DEXAMETHASONE
     Indication: Adverse event
     Dosage: UNK
     Dates: start: 20231212, end: 20240103
  40. DEXAMETHASONE [Concomitant]
     Active Substance: DEXAMETHASONE
     Dosage: 20 MG
     Route: 048
     Dates: start: 20240103
  41. DEXAMETHASONE [Concomitant]
     Active Substance: DEXAMETHASONE
     Dosage: 7.5 MG
     Route: 048
     Dates: start: 20240102
  42. CEPHALEXIN [Concomitant]
     Active Substance: CEPHALEXIN
     Dosage: UNK
     Dates: start: 20231231, end: 20240104
  43. NYSTATIN [Concomitant]
     Active Substance: NYSTATIN
     Dosage: UNK
     Dates: start: 20231222, end: 20240222
  44. ONDANSETRON [Concomitant]
     Active Substance: ONDANSETRON
     Dosage: UNK, ONGOING
     Dates: start: 20230925
  45. HICET [Concomitant]
     Indication: Premedication
     Dosage: 10 MG
     Route: 048
     Dates: start: 20240104, end: 20240104
  46. HICET [Concomitant]
     Dosage: 10 MG
     Dates: start: 20240111
  47. HICET [Concomitant]
     Dosage: 10 MG
     Dates: start: 20240118
  48. HICET [Concomitant]
     Dosage: 10 MG
     Dates: start: 20240125
  49. FUROSEMIDE [Concomitant]
     Active Substance: FUROSEMIDE
     Dosage: UNK, ONGOING
     Dates: start: 20230925
  50. FUROSEMIDE [Concomitant]
     Active Substance: FUROSEMIDE
     Dosage: UNK, ONGOING
     Dates: start: 20231212
  51. ENOXAPARIN SODIUM [Concomitant]
     Active Substance: ENOXAPARIN SODIUM
     Dosage: UNK
     Dates: start: 20230925, end: 20240320
  52. PREDNISOLONE [Concomitant]
     Active Substance: PREDNISOLONE
     Indication: Adverse event
     Dosage: 100 MG
     Route: 048
     Dates: start: 20231221, end: 20231224
  53. PREDNISOLONE [Concomitant]
     Active Substance: PREDNISOLONE
     Dosage: 100 MG
     Route: 048
     Dates: start: 20240104, end: 20240107
  54. PREDNISOLONE [Concomitant]
     Active Substance: PREDNISOLONE
     Dosage: 100 MG
     Route: 048
     Dates: start: 20231228, end: 20231231
  55. PEGFILGRASTIM [Concomitant]
     Active Substance: PEGFILGRASTIM
     Dosage: UNK, ONGOING
     Dates: start: 20230929
  56. VALACYCLOVIR HYDROCHLORIDE [Concomitant]
     Active Substance: VALACYCLOVIR HYDROCHLORIDE
     Dosage: UNK
     Dates: start: 20240118, end: 20240222
  57. ALOXI [Concomitant]
     Active Substance: PALONOSETRON HYDROCHLORIDE
     Dosage: UNK
     Dates: start: 20240125, end: 20240125
  58. ACLOVIR [Concomitant]
     Dosage: UNK
     Dates: start: 20240111, end: 20240117
  59. POTASSIUM CHLORIDE [Concomitant]
     Active Substance: POTASSIUM CHLORIDE
     Dosage: UNK
     Dates: start: 20231006, end: 20240215

REACTIONS (9)
  - Oral herpes [Unknown]
  - Nasal herpes [Unknown]
  - Blister infected [Unknown]
  - Neutropenic infection [Recovered/Resolved]
  - Neutropenia [Recovered/Resolved]
  - Feeling cold [Unknown]
  - Fatigue [Unknown]
  - Pyrexia [Recovered/Resolved]
  - Cytokine release syndrome [Recovered/Resolved]

NARRATIVE: CASE EVENT DATE: 20240111
